FAERS Safety Report 7700946-2 (Version None)
Quarter: 2011Q3

REPORT INFORMATION
  Report Type: 
  Country: None (occurrence: None)
  Receive Date: 20110817
  Receipt Date: 20110803
  Transmission Date: 20111222
  Serious: Yes (Hospitalization)
  Sender: FDA-Public Use
  Company Number: 1000022720

PATIENT
  Age: 64 Year
  Sex: Male
  Weight: 88 kg

DRUGS (8)
  1. RAMIPRIL (RAMIPRIL) (5 MILLIGRAM) (RAMIPRIL) [Concomitant]
  2. SIMVASTATIN (SIMVASTATIN0 (SIMVASTATIN) [Concomitant]
  3. ROFLUMILAST (ROFLUMILAST) (TABLETS) [Suspect]
     Indication: CHRONIC OBSTRUCTIVE PULMONARY DISEASE
     Dosage: 500 MCG (500 MCG, 1 IN 1 D), ORAL
     Route: 048
     Dates: start: 20110418
  4. OMEPRAZOLE [Concomitant]
  5. SYMBICORT (BUDESONIDE, FORMOTEROL FUMARATE) (BUDESONIDE, FORMOTEROL FU [Concomitant]
  6. SPIRIVA (TIOTROPIUM  BROMIDE) (TIOTROPIUM BROMIDE) [Concomitant]
  7. BISOPROLOL (BISOPROLOL) (2.5 MILLIGRAM) (BISOPROLOL) [Concomitant]
  8. ASS (ACETYLSALICYLIC ACID) (ACETYLSALICYLIC ACID) [Concomitant]

REACTIONS (1)
  - ANGINA UNSTABLE [None]
